FAERS Safety Report 14675489 (Version 1)
Quarter: 2018Q1

REPORT INFORMATION
  Report Type: Spontaneous
  Country: NO (occurrence: NO)
  Receive Date: 20180323
  Receipt Date: 20180323
  Transmission Date: 20180509
  Serious: Yes (Other)
  Sender: FDA-Public Use
  Company Number: NO-PFIZER INC-2018119163

PATIENT
  Age: 35 Year
  Sex: Male

DRUGS (1)
  1. TERRA-CORTRIL POLYMYXIN B [Suspect]
     Active Substance: HYDROCORTISONE\OXYTETRACYCLINE HYDROCHLORIDE\POLYMYXIN B SULFATE
     Indication: EAR INFECTION
     Dosage: 2 DROPS IN EACH EAR
     Route: 001
     Dates: start: 20180319, end: 20180319

REACTIONS (2)
  - Hypoacusis [Not Recovered/Not Resolved]
  - Deafness [Not Recovered/Not Resolved]

NARRATIVE: CASE EVENT DATE: 20180319
